FAERS Safety Report 4947934-7 (Version None)
Quarter: 2006Q1

REPORT INFORMATION
  Report Type: 
  Country: None (occurrence: None)
  Receive Date: 20060317
  Receipt Date: 20060317
  Transmission Date: 20060701
  Serious: Yes (Other)
  Sender: FDA-Public Use
  Company Number: None

PATIENT
  Age: 69 Year
  Sex: Male
  Weight: 104.3273 kg

DRUGS (4)
  1. AFRIN [Suspect]
     Indication: NASOPHARYNGITIS
     Dosage: NASAL SPRAY
     Route: 045
     Dates: start: 20051001, end: 20060101
  2. GARLIC [Concomitant]
  3. OMEGA-3 POLYUNSATURATED FATTY ACIDS [Concomitant]
  4. COENZYME Q10 [Concomitant]

REACTIONS (2)
  - HALLUCINATION [None]
  - INSOMNIA [None]
